FAERS Safety Report 5581977-8 (Version None)
Quarter: 2008Q1

REPORT INFORMATION
  Report Type: 
  Country: None (occurrence: None)
  Receive Date: 20080104
  Receipt Date: 20071227
  Transmission Date: 20080703
  Serious: Yes (Death)
  Sender: FDA-Public Use
  Company Number: D0052359A

PATIENT
  Age: 81 Year
  Sex: Male

DRUGS (8)
  1. FLUTIDE [Suspect]
     Indication: CHRONIC OBSTRUCTIVE PULMONARY DISEASE
     Route: 055
     Dates: end: 20060101
  2. SEREVENT [Suspect]
     Route: 055
  3. PANTOPRAZOLE SODIUM [Concomitant]
     Dosage: 40MG IN THE MORNING
     Route: 048
     Dates: end: 20060101
  4. XIPAMIDE [Concomitant]
     Dosage: 10MG IN THE MORNING
     Route: 065
     Dates: end: 20060701
  5. TEMAZEPAM [Concomitant]
     Route: 065
     Dates: end: 20060101
  6. HOMEOPATHIC MEDICATION [Concomitant]
     Route: 065
     Dates: end: 20060101
  7. TOREM [Concomitant]
     Dosage: 5MG IN THE MORNING
     Route: 065
     Dates: start: 20060701, end: 20060101
  8. VITAMIN B [Concomitant]
     Route: 065
     Dates: start: 20060701, end: 20060101

REACTIONS (23)
  - ABDOMINAL PAIN [None]
  - ACUTE HEPATIC FAILURE [None]
  - ANOREXIA [None]
  - AORTIC VALVE SCLEROSIS [None]
  - ASCITES [None]
  - BODY TEMPERATURE INCREASED [None]
  - CACHEXIA [None]
  - CHOLESTASIS [None]
  - DEHYDRATION [None]
  - DUODENITIS [None]
  - FATIGUE [None]
  - FLATULENCE [None]
  - GASTRITIS [None]
  - HEPATITIS CHOLESTATIC [None]
  - HEPATOCELLULAR INJURY [None]
  - HYPONATRAEMIA [None]
  - NAUSEA [None]
  - OEDEMA PERIPHERAL [None]
  - PORTAL HYPERTENSION [None]
  - REFLUX OESOPHAGITIS [None]
  - SCROTAL OEDEMA [None]
  - VOMITING [None]
  - WEIGHT DECREASED [None]
